FAERS Safety Report 8268877 (Version 5)
Quarter: 2014Q1

REPORT INFORMATION
  Report Type: Spontaneous
  Country: DK (occurrence: DK)
  Receive Date: 20111130
  Receipt Date: 20140123
  Transmission Date: 20141002
  Serious: Yes (Other)
  Sender: FDA-Public Use
  Company Number: PHHY2011DK099544

PATIENT
  Age: 68 Year
  Sex: Male

DRUGS (4)
  1. METHOTREXATE [Suspect]
     Indication: RHEUMATOID ARTHRITIS
     Dosage: 10 MG, QW
     Route: 030
     Dates: start: 20051129, end: 20051206
  2. METHOTREXATE [Suspect]
     Dosage: UNK UKN, UNK
     Dates: end: 20060523
  3. METHOTREXATE [Suspect]
     Dosage: UNK UKN, UNK
     Dates: end: 20070212
  4. METHOTREXATE [Suspect]
     Dosage: UNK UKN, UNK

REACTIONS (10)
  - Gliosis [Unknown]
  - Spinal osteoarthritis [Unknown]
  - Cerebral thrombosis [Unknown]
  - Hemiparesis [Unknown]
  - Balance disorder [Unknown]
  - Ataxia [Unknown]
  - Hemiplegia [Unknown]
  - Anaemia [Unknown]
  - Iron deficiency [Unknown]
  - Dizziness [Unknown]
